FAERS Safety Report 4956165-6 (Version None)
Quarter: 2006Q1

REPORT INFORMATION
  Report Type: 
  Country: None (occurrence: None)
  Receive Date: 20060322
  Receipt Date: 20060315
  Transmission Date: 20060701
  Serious: Yes (Hospitalization)
  Sender: FDA-Public Use
  Company Number: PCA0570975

PATIENT
  Age: 84 Year
  Sex: Male
  Weight: 74.8435 kg

DRUGS (3)
  1. MINOXIDIL [Suspect]
     Indication: HIRSUTISM
     Dosage: BID/SCALP
     Dates: start: 20040101, end: 20040101
  2. LIPITOR [Concomitant]
  3. NORVASC [Concomitant]

REACTIONS (2)
  - CHEST PAIN [None]
  - PHARMACEUTICAL PRODUCT COMPLAINT [None]
